FAERS Safety Report 10275858 (Version 1)
Quarter: 2014Q3

REPORT INFORMATION
  Report Type: Spontaneous
  Country: US (occurrence: US)
  Receive Date: 20140703
  Receipt Date: 20140703
  Transmission Date: 20150326
  Serious: No
  Sender: FDA-Public Use
  Company Number: US-ASTRAZENECA-2014SE46364

PATIENT
  Sex: Male

DRUGS (3)
  1. XANAX [Concomitant]
     Active Substance: ALPRAZOLAM
     Dosage: PRN
  2. LITHIUM [Interacting]
     Active Substance: LITHIUM CARBONATE
     Route: 065
  3. SEROQUEL XR [Suspect]
     Active Substance: QUETIAPINE FUMARATE
     Route: 048

REACTIONS (6)
  - Drug interaction [Unknown]
  - Orthostatic hypotension [Unknown]
  - Contusion [Unknown]
  - Electrocardiogram QT prolonged [Unknown]
  - Drug level changed [Unknown]
  - Fall [Unknown]
